FAERS Safety Report 25322896 (Version 1)
Quarter: 2025Q2

REPORT INFORMATION
  Report Type: Spontaneous
  Country: CN (occurrence: CN)
  Receive Date: 20250516
  Receipt Date: 20250516
  Transmission Date: 20250717
  Serious: Yes (Hospitalization, Other)
  Sender: SANOFI AVENTIS
  Company Number: CN-DialogSolutions-SAAVPROD-PI767813-C1

PATIENT
  Age: 66 Year
  Sex: Male

DRUGS (3)
  1. METOPROLOL [Suspect]
     Active Substance: METOPROLOL
     Indication: Dilated cardiomyopathy
  2. IRBESARTAN [Suspect]
     Active Substance: IRBESARTAN
     Indication: Dilated cardiomyopathy
  3. SPIRONOLACTONE [Suspect]
     Active Substance: SPIRONOLACTONE
     Indication: Dilated cardiomyopathy

REACTIONS (2)
  - Device malfunction [Recovered/Resolved]
  - Hyperkalaemia [Recovered/Resolved]
